FAERS Safety Report 20659793 (Version 1)
Quarter: 2022Q1

REPORT INFORMATION
  Report Type: Spontaneous
  Country: None (occurrence: US)
  Receive Date: 20220331
  Receipt Date: 20220331
  Transmission Date: 20220424
  Serious: No
  Sender: FDA-Public Use
  Company Number: US-Wellstat Therapeutics Corporation-2127290

PATIENT
  Age: 77 Year
  Sex: Female

DRUGS (2)
  1. VISTOGARD [Suspect]
     Active Substance: URIDINE TRIACETATE
     Indication: Chemotherapy toxicity attenuation
     Route: 050
     Dates: start: 20220318, end: 20220319
  2. FLUOROURACIL [Concomitant]
     Active Substance: FLUOROURACIL
     Dates: start: 20220308

REACTIONS (2)
  - Complication associated with device [Recovered/Resolved]
  - Inappropriate schedule of product administration [Recovered/Resolved]

NARRATIVE: CASE EVENT DATE: 20220319
